FAERS Safety Report 9857945 (Version 1)
Quarter: 2014Q1

REPORT INFORMATION
  Report Type: Spontaneous
  Country: US (occurrence: US)
  Receive Date: 20140131
  Receipt Date: 20140131
  Transmission Date: 20141002
  Serious: No
  Sender: FDA-Public Use
  Company Number: US-PFIZER INC-2014028931

PATIENT
  Sex: Female

DRUGS (4)
  1. XANAX XR [Suspect]
     Indication: ANXIETY
     Route: 048
  2. XANAX XR [Suspect]
     Dosage: 1 MG, 1X/DAY
     Route: 048
     Dates: start: 2012, end: 201401
  3. XANAX XR [Suspect]
     Dosage: 1 MG (TWO TABLETS OF 0.5MG), 1X/DAY
     Route: 048
     Dates: start: 201401
  4. PROZAC [Concomitant]
     Dosage: UNK

REACTIONS (1)
  - Drug ineffective [Unknown]
